FAERS Safety Report 7577125-5 (Version None)
Quarter: 2011Q2

REPORT INFORMATION
  Report Type: 
  Country: None (occurrence: None)
  Receive Date: 20110628
  Receipt Date: 20081001
  Transmission Date: 20111010
  Serious: Yes (Other)
  Sender: FDA-Public Use
  Company Number: US-BAYER-201040274NA

PATIENT
  Age: 58 Year
  Sex: Male
  Weight: 82 kg

DRUGS (6)
  1. ZESTRIL [Concomitant]
     Dosage: 20 MG, ONCE
     Route: 048
     Dates: start: 19890101
  2. PAXIL [Concomitant]
     Dosage: 20 MG, ONCE
     Route: 048
     Dates: start: 19890101
  3. ZOCOR [Concomitant]
     Dosage: 20 MG, ONCE
     Route: 048
     Dates: start: 19890101
  4. TRASYLOL [Suspect]
     Indication: ATRIAL SEPTAL DEFECT
     Route: 042
     Dates: start: 20041118
  5. TRASYLOL [Suspect]
     Indication: MITRAL VALVE REPAIR
  6. MIDRIN [Concomitant]
     Dosage: 3 TO 4 TIMES DAILY AS NEEDED
     Route: 048
     Dates: start: 19890101

REACTIONS (5)
  - PAIN [None]
  - EMOTIONAL DISTRESS [None]
  - CEREBROVASCULAR ACCIDENT [None]
  - ANXIETY [None]
  - INJURY [None]
